FAERS Safety Report 23968374 (Version 2)
Quarter: 2024Q2

REPORT INFORMATION
  Report Type: Spontaneous
  Country: US (occurrence: US)
  Receive Date: 20240612
  Receipt Date: 20240619
  Transmission Date: 20240716
  Serious: No
  Sender: FDA-Public Use
  Company Number: US-SA-SAC20240606000692

PATIENT
  Age: 43 Year
  Sex: Female

DRUGS (1)
  1. TZIELD [Suspect]
     Active Substance: TEPLIZUMAB-MZWV
     Dosage: UNK
     Route: 042
     Dates: start: 202405, end: 20240603

REACTIONS (6)
  - Heart rate increased [Unknown]
  - Malaise [Unknown]
  - Platelet count decreased [Unknown]
  - Rash [Unknown]
  - White blood cell count decreased [Unknown]
  - Peripheral swelling [Unknown]

NARRATIVE: CASE EVENT DATE: 20240101
